FAERS Safety Report 6534503-0 (Version None)
Quarter: 2010Q1

REPORT INFORMATION
  Report Type: 
  Country: None (occurrence: None)
  Receive Date: 20100112
  Receipt Date: 20091231
  Transmission Date: 20100710
  Serious: Yes (Life-Threatening)
  Sender: FDA-Public Use
  Company Number: IT-PFIZER INC-2010000144

PATIENT
  Age: 69 Year
  Sex: Female

DRUGS (3)
  1. SUTENT [Suspect]
     Indication: HEPATIC NEOPLASM MALIGNANT NON-RESECTABLE
     Dosage: 50 MG, 1X/DAY
     Route: 048
     Dates: start: 20091029, end: 20091117
  2. ANTRA [Concomitant]
     Indication: GASTRITIS
     Dosage: 20 MG
     Route: 048
  3. TENORMIN [Concomitant]
     Indication: HYPERTENSION
     Dosage: 100 MG
     Route: 048

REACTIONS (4)
  - ASCITES [None]
  - HEPATIC FAILURE [None]
  - JAUNDICE [None]
  - STOMATITIS [None]
